FAERS Safety Report 8930296 (Version 1)
Quarter: 2012Q4

REPORT INFORMATION
  Report Type: 
  Country: US (occurrence: US)
  Receive Date: 20121128
  Receipt Date: 20121128
  Transmission Date: 20130627
  Serious: Yes (Other)
  Sender: FDA-Public Use
  Company Number: US-GLAXOSMITHKLINE-A0887189A

PATIENT
  Age: 71 Year
  Sex: Male

DRUGS (2)
  1. AVANDIA [Suspect]
     Indication: TYPE 2 DIABETES MELLITUS
     Dosage: 4MG Per day
     Route: 048
     Dates: start: 20011226, end: 20080316
  2. ROSIGLITAZONE MALEATE [Suspect]
     Indication: TYPE 2 DIABETES MELLITUS
     Dosage: 8MG See dosage text
     Route: 048
     Dates: start: 200503, end: 200703

REACTIONS (1)
  - Cerebrovascular accident [Not Recovered/Not Resolved]
